FAERS Safety Report 10044370 (Version 1)
Quarter: 2014Q1

REPORT INFORMATION
  Report Type: Spontaneous
  Country: DK (occurrence: GB)
  Receive Date: 20140328
  Receipt Date: 20140328
  Transmission Date: 20141002
  Serious: Yes (Disabling)
  Sender: FDA-Public Use
  Company Number: GB-FRI-1000065849

PATIENT
  Age: 51 Year
  Sex: Male

DRUGS (4)
  1. CITALOPRAM [Suspect]
     Route: 048
  2. AGOMELATINE [Concomitant]
  3. BUPROPION [Concomitant]
  4. MIRTAZAPINE [Concomitant]

REACTIONS (1)
  - Erectile dysfunction [Unknown]
